FAERS Safety Report 8339821-1 (Version None)
Quarter: 2012Q2

REPORT INFORMATION
  Report Type: 
  Country: None (occurrence: None)
  Receive Date: 20120507
  Receipt Date: 20120427
  Transmission Date: 20120825
  Serious: Yes (Hospitalization)
  Sender: FDA-Public Use
  Company Number: US-CELGENEUS-163-21880-12030809

PATIENT
  Sex: Female
  Weight: 75.4 kg

DRUGS (8)
  1. TOCOPHEROL-D1-ALPHA [Concomitant]
     Dosage: 400 UNITS
     Route: 048
  2. OMEPRAZOLE [Concomitant]
     Dosage: 20 MILLIGRAM
     Route: 048
  3. DEXAMETHASONE [Suspect]
     Indication: MULTIPLE MYELOMA
     Route: 065
  4. OMEGA-3-FATTY ACIDS [Concomitant]
     Dosage: 1000 MILLIGRAM
     Route: 048
  5. REVLIMID [Suspect]
     Indication: MULTIPLE MYELOMA
     Dosage: 15 MILLIGRAM
     Route: 048
     Dates: start: 20110301, end: 20120208
  6. AMINOSALICYLIC ACID BUFFERED TAB [Concomitant]
     Dosage: 81 MILLIGRAM
     Route: 048
  7. VELCADE [Suspect]
     Indication: MULTIPLE MYELOMA
     Route: 065
  8. CHOLECALCIFEROL [Concomitant]
     Dosage: 1000 UNITS
     Route: 048

REACTIONS (1)
  - INTUSSUSCEPTION [None]
